FAERS Safety Report 7201024-1 (Version None)
Quarter: 2010Q4

REPORT INFORMATION
  Report Type: 
  Country: None (occurrence: None)
  Receive Date: 20101214
  Receipt Date: 20101206
  Transmission Date: 20110411
  Serious: Yes (Hospitalization, Other)
  Sender: FDA-Public Use
  Company Number: WAES 1009USA03337

PATIENT
  Age: 82 Year
  Sex: Female

DRUGS (18)
  1. HYDRODIURIL [Suspect]
     Dosage: PO
     Route: 048
     Dates: start: 20070406
  2. APIXABAN [Suspect]
     Indication: THROMBOSIS PROPHYLAXIS
     Dosage: 10 MG/DAILY PO
     Route: 048
     Dates: start: 20091208
  3. WARFARIN SODIUM [Suspect]
     Indication: CEREBROVASCULAR ACCIDENT PROPHYLAXIS
     Dosage: 2 MG/DAILY PO
     Route: 048
     Dates: start: 20091208
  4. PLAEEBO (UNSPECIFIED) [Suspect]
     Indication: CEREBROVASCULAR ACCIDENT PROPHYLAXIS
     Dosage: PO
     Route: 048
     Dates: start: 20091208
  5. CIPRALEX [Concomitant]
  6. GEMCAL CAPSULES [Concomitant]
  7. NOVOLET 30R [Concomitant]
  8. RIVOTRIL [Concomitant]
  9. AMILORIDE HYDROCHLORIDE [Concomitant]
  10. CLOPIDOGREL BISULFATE [Concomitant]
  11. DARIFENACIN HYDROBROMIDE [Concomitant]
  12. FUROSEMIDE [Concomitant]
  13. GLYBURIDE [Concomitant]
  14. LEVETIRACETAM [Concomitant]
  15. LOSARTAN POTASSIUM [Concomitant]
  16. METFORMIN HCL [Concomitant]
  17. PANTOPRAZOLE [Concomitant]
  18. PHENYTOIN [Concomitant]

REACTIONS (9)
  - CYSTITIS RADIATION [None]
  - DIABETIC NEPHROPATHY [None]
  - HAEMATOCRIT DECREASED [None]
  - HAEMOGLOBIN DECREASED [None]
  - HYPONATRAEMIA [None]
  - PERIPHERAL SENSORIMOTOR NEUROPATHY [None]
  - RED BLOOD CELL COUNT DECREASED [None]
  - URINARY RETENTION [None]
  - URINARY TRACT INFECTION [None]
